FAERS Safety Report 17094752 (Version 1)
Quarter: 2019Q4

REPORT INFORMATION
  Report Type: Spontaneous
  Country: DE (occurrence: DE)
  Receive Date: 20191130
  Receipt Date: 20191130
  Transmission Date: 20200122
  Serious: Yes (Other)
  Sender: FDA-Public Use
  Company Number: DE-AUROBINDO-AUR-APL-2019-075419

PATIENT
  Age: 61 Year
  Sex: Female

DRUGS (5)
  1. KYTTA-SEDATIVUM [Interacting]
     Active Substance: HERBALS
     Dosage: UNK,UNKNOWN DOSE AND DATE
     Route: 065
  2. VITAMIN D3 [Concomitant]
     Active Substance: CHOLECALCIFEROL
     Indication: VITAMIN D DEFICIENCY
     Dosage: 4000 INTERNATIONAL UNIT, ONCE A DAY (OIL DROPS)
     Route: 065
  3. RAMIPRIL. [Suspect]
     Active Substance: RAMIPRIL
     Indication: HYPERTENSION
     Dosage: 2.5 MILLIGRAM, ONCE A DAY
     Route: 065
     Dates: end: 2019
  4. KYTTA-SEDATIVUM [Interacting]
     Active Substance: HERBALS
     Dosage: 1 DOSAGE FORM (0.5 DAY)
     Dates: start: 20191025, end: 201910
  5. KYTTA-SEDATIVUM [Interacting]
     Active Substance: HERBALS
     Indication: FEELING OF RELAXATION
     Dosage: 1 DOSAGE FORM, ONCE A DAY (DOSE REDUCED AND LATER DISCONTINUED)
     Route: 065
     Dates: start: 201910, end: 20191101

REACTIONS (7)
  - Drug interaction [Unknown]
  - Dizziness [Recovering/Resolving]
  - Somnolence [Recovering/Resolving]
  - Blood pressure increased [Recovering/Resolving]
  - Malaise [Recovering/Resolving]
  - Asthenia [Recovering/Resolving]
  - Nausea [Recovering/Resolving]

NARRATIVE: CASE EVENT DATE: 2019
